FAERS Safety Report 9095035 (Version 1)
Quarter: 2013Q1

REPORT INFORMATION
  Report Type: Report from Study
  Country: JP (occurrence: JP)
  Receive Date: 20130219
  Receipt Date: 20130219
  Transmission Date: 20140127
  Serious: Yes (Death, Other)
  Sender: FDA-Public Use
  Company Number: JP-009507513-2008SP013036

PATIENT
  Age: 47 Year
  Sex: Female
  Weight: 49 kg

DRUGS (23)
  1. TEMODAL [Suspect]
     Indication: ANAPLASTIC ASTROCYTOMA
     Dosage: 75 MG/M2, QD
     Route: 048
     Dates: start: 20070711, end: 20070821
  2. TEMODAL [Suspect]
     Dosage: 150 MG/M2, QD
     Route: 048
     Dates: start: 20070921, end: 20070925
  3. TEMODAL [Suspect]
     Dosage: 200 MG/M2, QD
     Route: 048
     Dates: start: 20071020, end: 20071024
  4. TEMODAL [Suspect]
     Dosage: 200 MG/M2, QD
     Route: 048
     Dates: start: 20071117, end: 20071121
  5. TEMODAL [Suspect]
     Dosage: 200 MG/M2, QD
     Route: 048
     Dates: start: 20071221, end: 20071225
  6. TEMODAL [Suspect]
     Dosage: 200 MG/M2, QD
     Route: 048
     Dates: start: 20080118, end: 20080122
  7. TEMODAL [Suspect]
     Dosage: 200 MG/M2, QD
     Route: 048
     Dates: start: 20080312, end: 20080316
  8. TEMODAL [Suspect]
     Dosage: 200 MG/M2, QD
     Route: 048
     Dates: start: 20080509, end: 20080513
  9. TEMODAL [Suspect]
     Dosage: 200 MG/M2, QD
     Route: 048
     Dates: start: 20080704, end: 20080708
  10. TEMODAL [Suspect]
     Dosage: 200 MG/M2, QD
     Route: 048
     Dates: start: 20080815, end: 20080819
  11. TEMODAL [Suspect]
     Dosage: 200 MG/M2, QD
     Route: 048
     Dates: start: 20081024, end: 20081028
  12. TEMODAL [Suspect]
     Dosage: 200 MG/M2, QD
     Route: 048
     Dates: start: 20081226, end: 20081230
  13. TEMODAL [Suspect]
     Dosage: 200 MG/M2, QD
     Route: 048
     Dates: start: 20090306, end: 20090310
  14. TEMODAL [Suspect]
     Dosage: 200 MG/M2, QD
     Route: 048
     Dates: start: 20090522, end: 20090526
  15. DEPAKENE [Suspect]
     Indication: PROPHYLAXIS
     Route: 048
     Dates: end: 20090716
  16. TAKEPRON [Concomitant]
     Dosage: FORMULATION :POR
     Route: 048
     Dates: end: 20070829
  17. SOLANAX [Concomitant]
     Dosage: FORMULATION :POR
     Route: 048
     Dates: end: 20090921
  18. BENZALIN [Concomitant]
     Dosage: FORMULATION :POR
     Route: 048
     Dates: end: 20090921
  19. SELBEX [Concomitant]
     Dosage: FORMULATION :POR
     Route: 048
     Dates: end: 20090921
  20. MAGMITT [Concomitant]
     Indication: PROPHYLAXIS
     Dosage: UNK
     Route: 048
     Dates: end: 20080205
  21. NAVOBAN [Concomitant]
     Indication: PROPHYLAXIS
     Route: 048
     Dates: start: 20070711, end: 20090526
  22. HIBON [Concomitant]
     Route: 048
     Dates: start: 20070815, end: 20070904
  23. LAXOBERON [Concomitant]
     Dosage: UNK UNK, PRN
     Route: 048
     Dates: start: 20070712

REACTIONS (14)
  - Lung adenocarcinoma stage IV [Fatal]
  - Red blood cell count decreased [Not Recovered/Not Resolved]
  - Haemoglobin decreased [Not Recovered/Not Resolved]
  - Lymphocyte count decreased [Recovering/Resolving]
  - White blood cell count decreased [Recovered/Resolved]
  - Neutrophil count decreased [Recovered/Resolved]
  - Platelet count decreased [Recovering/Resolving]
  - Platelet count decreased [Recovering/Resolving]
  - Red blood cell count decreased [Recovering/Resolving]
  - Haematocrit decreased [Recovering/Resolving]
  - Haemoglobin decreased [Recovering/Resolving]
  - Seborrhoeic dermatitis [Recovered/Resolved]
  - Haematocrit decreased [Not Recovered/Not Resolved]
  - Constipation [Recovered/Resolved]
